FAERS Safety Report 12159173 (Version 1)
Quarter: 2016Q1

REPORT INFORMATION
  Report Type: Spontaneous
  Country: US (occurrence: None)
  Receive Date: 20160307
  Receipt Date: 20160307
  Transmission Date: 20160526
  Serious: No
  Sender: FDA-Public Use
  Company Number: None

PATIENT
  Age: 2 Year
  Sex: Female
  Weight: 12.9 kg

DRUGS (8)
  1. DEXAMETHASONE. [Suspect]
     Active Substance: DEXAMETHASONE
     Dates: end: 20160225
  2. ONCASPAR [Suspect]
     Active Substance: PEGASPARGASE
     Dates: end: 20160201
  3. SULFAMETHAXOLE-TRIMETHOPRIM [Concomitant]
  4. RANITIDINE [Concomitant]
     Active Substance: RANITIDINE\RANITIDINE HYDROCHLORIDE
  5. CYTARABINE. [Suspect]
     Active Substance: CYTARABINE
     Dates: end: 20160128
  6. VINCRISTINE SULFATE. [Suspect]
     Active Substance: VINCRISTINE SULFATE
     Dates: end: 20160219
  7. ONDANSETRON [Concomitant]
     Active Substance: ONDANSETRON
  8. METHOTREXATE [Suspect]
     Active Substance: METHOTREXATE
     Dates: end: 20160226

REACTIONS (3)
  - Aspartate aminotransferase increased [None]
  - Alanine aminotransferase increased [None]
  - Pyrexia [None]

NARRATIVE: CASE EVENT DATE: 20160228
